FAERS Safety Report 11278392 (Version 1)
Quarter: 2015Q3

REPORT INFORMATION
  Report Type: Spontaneous
  Country: IT (occurrence: IT)
  Receive Date: 20150717
  Receipt Date: 20150717
  Transmission Date: 20151125
  Serious: Yes (Other)
  Sender: FDA-Public Use
  Company Number: IT-CIPLA LTD.-2015IT05655

PATIENT

DRUGS (6)
  1. VENLOR XR [Interacting]
     Active Substance: VENLAFAXINE HYDROCHLORIDE
     Indication: DEPRESSION
     Dosage: 150 MG/DAY
     Route: 065
     Dates: start: 201312
  2. TENOFOVIR DISOPROXIL FUMARATE. [Suspect]
     Active Substance: TENOFOVIR DISOPROXIL FUMARATE
     Indication: CHRONIC HEPATITIS B
     Dosage: 245 MG, A DAY
     Route: 065
     Dates: start: 201303
  3. INTERFERON [Interacting]
     Active Substance: INTERFERON
     Indication: CHRONIC HEPATITIS B
     Dosage: UNK
     Route: 065
     Dates: start: 200309
  4. ZOLPIDEM TARTARATE [Interacting]
     Active Substance: ZOLPIDEM TARTRATE
     Indication: DEPRESSION
     Dosage: 10 MG/DAY
     Route: 065
     Dates: start: 201312, end: 201401
  5. VENLOR XR [Interacting]
     Active Substance: VENLAFAXINE HYDROCHLORIDE
     Dosage: 75 MG/DAY
     Route: 065
     Dates: start: 201401
  6. PAROXETINE [Interacting]
     Active Substance: PAROXETINE\PAROXETINE HYDROCHLORIDE
     Indication: DEPRESSION
     Dosage: 20 MG/DAY
     Route: 065
     Dates: start: 201312, end: 201401

REACTIONS (7)
  - Transaminases increased [Unknown]
  - Infection reactivation [Recovering/Resolving]
  - Therapy cessation [None]
  - Hepatitis B [None]
  - Drug interaction [Unknown]
  - Depressed mood [Recovering/Resolving]
  - Insomnia [Recovering/Resolving]

NARRATIVE: CASE EVENT DATE: 201311
